FAERS Safety Report 11747979 (Version 2)
Quarter: 2016Q2

REPORT INFORMATION
  Report Type: Spontaneous
  Country: SK (occurrence: SK)
  Receive Date: 20151117
  Receipt Date: 20160614
  Transmission Date: 20160815
  Serious: Yes (Other)
  Sender: FDA-Public Use
  Company Number: SK-GLAXOSMITHKLINE-SK2015GSK163774

PATIENT
  Age: 55 Year
  Sex: Male

DRUGS (8)
  1. BENLYSTA [Suspect]
     Active Substance: BELIMUMAB
     Indication: SYSTEMIC LUPUS ERYTHEMATOSUS
     Dosage: 1000 MG, SINGLE
     Route: 042
     Dates: start: 20151026
  2. PREDNISON [Concomitant]
     Active Substance: PREDNISONE
     Dosage: 15 MG, 1D
  3. ADENURIC [Concomitant]
     Active Substance: FEBUXOSTAT
  4. SOLU-MEDROL [Concomitant]
     Active Substance: METHYLPREDNISOLONE SODIUM SUCCINATE
     Indication: PREMEDICATION
     Dosage: 125 MG, UNK
     Dates: start: 20151026, end: 20151026
  5. PLAQUENIL [Concomitant]
     Active Substance: HYDROXYCHLOROQUINE SULFATE
     Dosage: 200 MG, 1D
  6. EQUORAL [Concomitant]
     Active Substance: CYCLOSPORINE
     Dosage: UNK
  7. CALTRATE WITH VITAMIN D [Concomitant]
     Active Substance: CALCIUM CARBONATE\CHOLECALCIFEROL
  8. COLAFIT [Concomitant]

REACTIONS (2)
  - Thrombocytopenia [Unknown]
  - Leukopenia [Not Recovered/Not Resolved]

NARRATIVE: CASE EVENT DATE: 20151116
